FAERS Safety Report 8908595 (Version 3)
Quarter: 2015Q2

REPORT INFORMATION
  Report Type: Spontaneous
  Country: US (occurrence: US)
  Receive Date: 20121114
  Receipt Date: 20150625
  Transmission Date: 20150821
  Serious: Yes (Death, Other)
  Sender: FDA-Public Use
  Company Number: US-PFIZER INC-2012281219

PATIENT
  Age: 5 Week
  Sex: Male
  Weight: 4.6 kg

DRUGS (4)
  1. CHLORAMPHENICOL SODIUM SUCCINATE. [Suspect]
     Active Substance: CHLORAMPHENICOL SODIUM SUCCINATE
     Dosage: 100 MG/KG/24/HOURS IN SIX DOSES
     Route: 042
  2. CHLORAMPHENICOL SODIUM SUCCINATE. [Suspect]
     Active Substance: CHLORAMPHENICOL SODIUM SUCCINATE
     Indication: HAEMOPHILUS INFECTION
     Dosage: 100 MG/KG/DAY
     Route: 042
  3. AMPICILLIN [Concomitant]
     Active Substance: AMPICILLIN
     Indication: HAEMOPHILUS INFECTION
     Dosage: 400 MG/KG/DAY
     Route: 042
  4. PHENOBARBITAL. [Concomitant]
     Active Substance: PHENOBARBITAL
     Indication: SEIZURE
     Dosage: 5 MG/KG/DAY

REACTIONS (13)
  - Apnoea [Unknown]
  - Liver disorder [Unknown]
  - Oliguria [Unknown]
  - Grey syndrome neonatal [Fatal]
  - Hyperkalaemia [Unknown]
  - Lethargy [Unknown]
  - Overdose [Fatal]
  - Arrhythmia [Fatal]
  - Hypothermia [Unknown]
  - Hypoglycaemia [Unknown]
  - Pallor [Unknown]
  - Hypotension [Unknown]
  - Acidosis [Unknown]
